FAERS Safety Report 8839976 (Version 3)
Quarter: 2012Q4

REPORT INFORMATION
  Report Type: 
  Country: US (occurrence: US)
  Receive Date: 20121015
  Receipt Date: 20121210
  Transmission Date: 20130627
  Serious: Yes (Other)
  Sender: FDA-Public Use
  Company Number: US-BAYER-2012-105113

PATIENT
  Age: 43 Year
  Sex: Female

DRUGS (5)
  1. NEXAVAR [Suspect]
     Indication: DESMOID TUMOR
     Dosage: 200 mg, BID
     Route: 048
     Dates: start: 20120925, end: 201211
  2. NEXAVAR [Suspect]
     Indication: DESMOID TUMOR
     Dosage: 600 mg QD (200mg am + 400mg pm alternating with 200mg BID
     Dates: start: 201211
  3. NEXAVAR [Suspect]
     Indication: DESMOID TUMOR
     Dosage: 200 mg BID alternating with 200mg am + 400mg pm
     Route: 048
     Dates: start: 201211
  4. ANTIHYPERTENSIVES [Concomitant]
     Indication: HYPERTENSION
     Dosage: UNK
  5. ANTIHYPERTENSIVES [Concomitant]
     Indication: HYPERTENSION
     Dosage: UNK
     Dates: start: 20121006

REACTIONS (12)
  - Heart rate increased [Recovering/Resolving]
  - Tumour pain [Not Recovered/Not Resolved]
  - Palpitations [Recovering/Resolving]
  - Vein disorder [Not Recovered/Not Resolved]
  - Blood pressure diastolic increased [Recovering/Resolving]
  - Vomiting [Recovered/Resolved]
  - Skin burning sensation [Not Recovered/Not Resolved]
  - Pain of skin [Not Recovered/Not Resolved]
  - Dizziness [Not Recovered/Not Resolved]
  - Feeling abnormal [Not Recovered/Not Resolved]
  - Gait disturbance [Not Recovered/Not Resolved]
  - Off label use [None]
